FAERS Safety Report 13037918 (Version 1)
Quarter: 2016Q4

REPORT INFORMATION
  Report Type: Spontaneous
  Country: FR (occurrence: FR)
  Receive Date: 20161218
  Receipt Date: 20161218
  Transmission Date: 20170207
  Serious: Yes (Death, Hospitalization, Other)
  Sender: FDA-Public Use
  Company Number: FR-BRISTOL-MYERS SQUIBB COMPANY-BMS-2016-105312

PATIENT
  Age: 81 Year
  Sex: Female

DRUGS (1)
  1. YERVOY [Suspect]
     Active Substance: IPILIMUMAB
     Indication: METASTATIC MALIGNANT MELANOMA
     Dosage: 3 MG/KG, Q3WK
     Route: 042
     Dates: start: 20160616, end: 20160818

REACTIONS (14)
  - Thyroiditis [Recovering/Resolving]
  - Hyponatraemia [Recovering/Resolving]
  - Oedema peripheral [Not Recovered/Not Resolved]
  - Asthenia [Not Recovered/Not Resolved]
  - Disseminated intravascular coagulation [Recovering/Resolving]
  - Inappropriate antidiuretic hormone secretion [Unknown]
  - Hyperthyroidism [Recovering/Resolving]
  - Vitiligo [Unknown]
  - General physical health deterioration [Fatal]
  - Generalised oedema [Fatal]
  - Autoimmune colitis [Recovering/Resolving]
  - Diarrhoea [Unknown]
  - Septic shock [Recovered/Resolved]
  - Hypothyroidism [Unknown]

NARRATIVE: CASE EVENT DATE: 201607
